FAERS Safety Report 5012171-7 (Version None)
Quarter: 2006Q2

REPORT INFORMATION
  Report Type: 
  Country: None (occurrence: None)
  Receive Date: 20060526
  Receipt Date: 20060516
  Transmission Date: 20061013
  Serious: Yes (Hospitalization, Other)
  Sender: FDA-Public Use
  Company Number: DE-ABBOTT-06P-062-0333283-00

PATIENT
  Sex: Female

DRUGS (4)
  1. LIPIDIL [Suspect]
     Indication: DYSLIPIDAEMIA
     Route: 048
  2. PANTOZOL [Suspect]
     Indication: DYSPEPSIA
     Route: 048
     Dates: start: 20020101, end: 20060101
  3. EPROSARTAN [Concomitant]
     Indication: ESSENTIAL HYPERTENSION
     Route: 048
  4. LEVOTHYROXINE SODIUM [Concomitant]
     Indication: HYPOTHYROIDISM
     Route: 048

REACTIONS (2)
  - EYE PAIN [None]
  - VISUAL FIELD DEFECT [None]
